FAERS Safety Report 9988893 (Version 2)
Quarter: 2014Q1

REPORT INFORMATION
  Report Type: Report from Study
  Country: US (occurrence: US)
  Receive Date: 20140310
  Receipt Date: 20140310
  Transmission Date: 20141002
  Serious: No
  Sender: FDA-Public Use
  Company Number: US-ABBVIE-13P-163-1123222-00

PATIENT
  Age: 41 Year
  Sex: Female

DRUGS (8)
  1. HUMIRA [Suspect]
     Indication: CROHN^S DISEASE
     Dates: start: 20130705, end: 20130705
  2. HUMIRA [Suspect]
     Dates: start: 20130719, end: 20130719
  3. HUMIRA [Suspect]
  4. TAMOXIFEN [Concomitant]
     Indication: BREAST CANCER
  5. EFFEXOR [Concomitant]
     Indication: ADVERSE DRUG REACTION
  6. EFFEXOR [Concomitant]
     Indication: NIGHT SWEATS
  7. APRISO [Concomitant]
     Indication: CROHN^S DISEASE
  8. Z-PAK [Concomitant]
     Indication: OROPHARYNGEAL PAIN
     Dates: start: 201307

REACTIONS (9)
  - Fatigue [Not Recovered/Not Resolved]
  - Asthenia [Not Recovered/Not Resolved]
  - Abdominal tenderness [Not Recovered/Not Resolved]
  - Diarrhoea [Not Recovered/Not Resolved]
  - Oropharyngeal pain [Not Recovered/Not Resolved]
  - Drug ineffective [Not Recovered/Not Resolved]
  - Fatigue [Not Recovered/Not Resolved]
  - Fatigue [Not Recovered/Not Resolved]
  - Pain [Not Recovered/Not Resolved]
